FAERS Safety Report 23070814 (Version 6)
Quarter: 2024Q2

REPORT INFORMATION
  Report Type: Spontaneous
  Country: US (occurrence: US)
  Receive Date: 20231016
  Receipt Date: 20240520
  Transmission Date: 20240716
  Serious: No
  Sender: FDA-Public Use
  Company Number: US-PFIZER INC-202300325079

PATIENT
  Age: 89 Year
  Sex: Female

DRUGS (1)
  1. RETACRIT [Suspect]
     Active Substance: EPOETIN ALFA-EPBX
     Dosage: 3000 UNITS EVERY MONTH IN A SHOT

REACTIONS (6)
  - Iron deficiency anaemia [Unknown]
  - Blood pressure increased [Unknown]
  - Haemoglobin increased [Unknown]
  - Inappropriate schedule of product administration [Unknown]
  - Drug monitoring procedure incorrectly performed [Unknown]
  - Intentional product misuse [Unknown]
